FAERS Safety Report 9482684 (Version 1)
Quarter: 2013Q3

REPORT INFORMATION
  Report Type: Spontaneous
  Country: CA (occurrence: CA)
  Receive Date: 20130828
  Receipt Date: 20130828
  Transmission Date: 20140515
  Serious: Yes (Other)
  Sender: FDA-Public Use
  Company Number: CA-ROCHE-1265799

PATIENT
  Age: 41 Year
  Sex: Female

DRUGS (6)
  1. XOLAIR [Suspect]
     Indication: OFF LABEL USE
     Route: 058
     Dates: start: 20130813
  2. XOLAIR [Suspect]
     Route: 058
     Dates: start: 20130820
  3. PREDNISONE [Concomitant]
     Route: 065
  4. ELAVIL (CANADA) [Concomitant]
     Route: 065
  5. AXERT [Concomitant]
     Route: 065
  6. ASPEN [Concomitant]

REACTIONS (3)
  - Urticaria [Recovered/Resolved]
  - Pain [Not Recovered/Not Resolved]
  - Fatigue [Not Recovered/Not Resolved]
